FAERS Safety Report 4315864-X (Version None)
Quarter: 2004Q1

REPORT INFORMATION
  Report Type: 
  Country: None (occurrence: None)
  Receive Date: 20040310
  Receipt Date: 20040301
  Transmission Date: 20041129
  Serious: Yes (Life-Threatening, Hospitalization)
  Sender: FDA-Public Use
  Company Number: RENA-10720

PATIENT
  Age: 49 Year
  Sex: Female
  Weight: 42 kg

DRUGS (8)
  1. RENAGEL [Suspect]
     Indication: HYPERPHOSPHATAEMIA
     Dosage: 1.5 G QD PO
     Route: 048
     Dates: start: 20030807, end: 20040925
  2. RENAGEL [Suspect]
     Indication: HYPERPHOSPHATAEMIA
     Dosage: 1.5 G QD PO
     Route: 048
     Dates: start: 20031009
  3. CALCIUM POLYSTYRENE SULFONATE [Concomitant]
  4. CIMETIDINE HCL [Concomitant]
  5. LOSARTAN POTASSIUM [Concomitant]
  6. AMLODIPINE BESYLATE [Concomitant]
  7. SENNOSIDE A+B [Concomitant]
  8. LACTOBACILLUS BIFIDUS [Concomitant]

REACTIONS (1)
  - LARGE INTESTINE PERFORATION [None]
